FAERS Safety Report 6710286-6 (Version None)
Quarter: 2010Q2

REPORT INFORMATION
  Report Type: 
  Country: None (occurrence: None)
  Receive Date: 20100430
  Receipt Date: 20100416
  Transmission Date: 20101027
  Serious: Yes (Other)
  Sender: FDA-Public Use
  Company Number: 010677

PATIENT
  Age: 36 Year
  Sex: Male

DRUGS (7)
  1. VIMPAT [Suspect]
     Indication: PARTIAL SEIZURES
     Dosage: MAXIMUM DOSE: 100 MG; INCREASE OF 50 MG/WEEK
     Dates: start: 20090213, end: 20090401
  2. LEVETIRACETAM [Concomitant]
  3. UNKNOWN [Concomitant]
  4. LAMOTRIGINE [Concomitant]
  5. VALPROATE SODIUM [Concomitant]
  6. CARBAMAZEPINE [Concomitant]
  7. CLONAZEPAM [Concomitant]

REACTIONS (3)
  - FATIGUE [None]
  - GAIT DISTURBANCE [None]
  - WEIGHT INCREASED [None]
